FAERS Safety Report 15262064 (Version 1)
Quarter: 2018Q3

REPORT INFORMATION
  Report Type: Spontaneous
  Country: US (occurrence: US)
  Receive Date: 20180809
  Receipt Date: 20180809
  Transmission Date: 20181010
  Serious: Yes (Hospitalization)
  Sender: FDA-Public Use
  Company Number: US-B.I. PHARMACEUTICALS,INC./RIDGEFIELD-2018-BI-040141

PATIENT
  Age: 65 Year
  Sex: Female
  Weight: 100 kg

DRUGS (1)
  1. JARDIANCE [Suspect]
     Active Substance: EMPAGLIFLOZIN
     Indication: TYPE 2 DIABETES MELLITUS
     Route: 048
     Dates: start: 201803, end: 201803

REACTIONS (5)
  - Urinary incontinence [Recovered/Resolved]
  - Renal injury [Recovered/Resolved]
  - Gait disturbance [Recovered/Resolved]
  - Ketoacidosis [Recovered/Resolved]
  - Micturition urgency [Recovered/Resolved]

NARRATIVE: CASE EVENT DATE: 201803
